FAERS Safety Report 8570699-7 (Version None)
Quarter: 2012Q3

REPORT INFORMATION
  Report Type: 
  Country: None (occurrence: None)
  Receive Date: 20120805
  Receipt Date: 20120622
  Transmission Date: 20120928
  Serious: No
  Sender: FDA-Public Use
  Company Number: US-009507513-2012SP036259

PATIENT

DRUGS (3)
  1. CLARITIN REDITABS [Suspect]
     Indication: HYPERSENSITIVITY
  2. CLARITIN REDITABS [Suspect]
     Indication: RHINORRHOEA
  3. CLARITIN REDITABS [Suspect]
     Indication: NASAL DISCOMFORT
     Dosage: 10 MG, QAM
     Route: 048
     Dates: start: 20120401, end: 20120501

REACTIONS (1)
  - DRUG INEFFECTIVE [None]
